FAERS Safety Report 6677616-5 (Version None)
Quarter: 2010Q2

REPORT INFORMATION
  Report Type: 
  Country: None (occurrence: None)
  Receive Date: 20100412
  Receipt Date: 20100217
  Transmission Date: 20101027
  Serious: Yes (Other)
  Sender: FDA-Public Use
  Company Number: FR-ALEXION-A201000164

PATIENT

DRUGS (2)
  1. SOLIRIS [Suspect]
     Indication: PAROXYSMAL NOCTURNAL HAEMOGLOBINURIA
  2. COVERSYL                           /00790701/ [Concomitant]
     Dosage: UNK

REACTIONS (6)
  - ASTHENIA [None]
  - COUGH [None]
  - DRY SKIN [None]
  - HEADACHE [None]
  - PRIAPISM [None]
  - PRURITUS [None]
